FAERS Safety Report 8190146-7 (Version None)
Quarter: 2012Q1

REPORT INFORMATION
  Report Type: 
  Country: None (occurrence: None)
  Receive Date: 20120221
  Receipt Date: 20120103
  Transmission Date: 20120608
  Serious: No
  Sender: FDA-Public Use
  Company Number: 1000026761

PATIENT
  Age: 64 Year
  Sex: Female

DRUGS (21)
  1. VIIBRYD [Suspect]
     Indication: FIBROMYALGIA
     Dosage: 40 MG (40 MG, 1 IN 1 D), ORAL
     Route: 048
     Dates: start: 20110101, end: 20111201
  2. RESTASIS (CICLOSPORIN) (CICLOSPORIN) [Concomitant]
  3. NEXIUM [Concomitant]
  4. PRAVASTATIN [Concomitant]
  5. BELLADONNA (BELLADONNA) (BELLADONNA) [Concomitant]
  6. ACYCLOVIR (ACYCLOVIR) (ACYCLOVIR) [Concomitant]
  7. VOLTAREN (DICLOFENAC) (DICLOFENAC) [Concomitant]
  8. MIDRIN (ISOMETHEPTENE, DICHLORALPHENAZONE, ACETAMINOPHEN) (ISOMETHEPTE [Concomitant]
  9. FLEXERIL (CYCLOBENZAPRINE) (CYCLOBENZAPRINE) [Concomitant]
  10. MELOXICAM [Concomitant]
  11. MECLIZINE (MECLIZINE) (MECLIZINE) [Concomitant]
  12. VIVELLE DOT (ESTRADIOL) (ESTRADIOL) [Concomitant]
  13. TRAVATAN (TRAVOPROST) (TRAVOPROST) [Concomitant]
  14. DOXYCYCLINE [Concomitant]
  15. PROPRANOLOL [Concomitant]
  16. VIIBRYD [Suspect]
     Indication: FIBROMYALGIA
     Dosage: 10 MG (10 MG, 1 IN 1 D), ORAL
     Route: 048
     Dates: start: 20111101, end: 20110101
  17. AMBIEN [Suspect]
     Indication: INSOMNIA
     Dosage: 5 MG (5 MG)
  18. LYRICA [Concomitant]
  19. LOTEMAX (LOTEPREDNOL ETABONATE) (LOTEPREDNOL ETABONATE) [Concomitant]
  20. LOTRISONE (LOTRISONE) (LOTRISONE) [Concomitant]
  21. PROVERA (MEDROXYPROGESTERONE ACETATE) (MEDROXYPROGESTERONE ACETATE) [Concomitant]

REACTIONS (12)
  - TEARFULNESS [None]
  - PARAESTHESIA [None]
  - ANXIETY [None]
  - AGGRESSION [None]
  - OFF LABEL USE [None]
  - CRYING [None]
  - DEPRESSION [None]
  - HEADACHE [None]
  - INSOMNIA [None]
  - ASTHENIA [None]
  - CONFUSIONAL STATE [None]
  - IRRITABILITY [None]
